FAERS Safety Report 9171604 (Version 2)
Quarter: 2013Q1

REPORT INFORMATION
  Report Type: Spontaneous
  Country: US (occurrence: None)
  Receive Date: 20130123
  Receipt Date: 20130314
  Transmission Date: 20140127
  Serious: Yes (Other)
  Sender: FDA-Public Use
  Company Number: 2013PROUSA02465

PATIENT
  Age: 71 Year
  Sex: Male

DRUGS (2)
  1. PROVENGE [Suspect]
     Indication: PROSTATE CANCER METASTATIC
     Dosage: SINGLE
     Route: 042
     Dates: start: 20121115, end: 20121115
  2. ANESTHETICS [Suspect]

REACTIONS (5)
  - Gallbladder disorder [None]
  - Post procedural complication [None]
  - Nausea [None]
  - Diarrhoea [None]
  - Anaesthetic complication [None]
